FAERS Safety Report 7549970-3 (Version None)
Quarter: 2011Q2

REPORT INFORMATION
  Report Type: 
  Country: None (occurrence: None)
  Receive Date: 20110615
  Receipt Date: 20110610
  Transmission Date: 20111010
  Serious: Yes (Other)
  Sender: FDA-Public Use
  Company Number: US-PFIZER INC-2011127727

PATIENT
  Sex: Female

DRUGS (5)
  1. PRISTIQ [Suspect]
     Indication: BIPOLAR DISORDER
     Dosage: 100 MG, 1X/DAY
     Route: 048
  2. LAMICTAL [Suspect]
     Dosage: UNK
  3. BUPROPION HCL [Suspect]
     Dosage: UNK
  4. LITHIUM [Suspect]
     Dosage: UNK
  5. PRISTIQ [Suspect]
     Dosage: 100 MG, UNK
     Route: 048

REACTIONS (4)
  - BLOOD CHOLESTEROL INCREASED [None]
  - BLOOD TRIGLYCERIDES INCREASED [None]
  - WEIGHT INCREASED [None]
  - DEPRESSION [None]
